FAERS Safety Report 14878566 (Version 2)
Quarter: 2018Q2

REPORT INFORMATION
  Report Type: Report from Study
  Country: JP (occurrence: JP)
  Receive Date: 20180511
  Receipt Date: 20180515
  Transmission Date: 20180711
  Serious: Yes (Hospitalization)
  Sender: FDA-Public Use
  Company Number: JP-ROCHE-2083546

PATIENT
  Age: 57 Year
  Sex: Female
  Weight: 47.8 kg

DRUGS (60)
  1. CEFMETAZOLE SODIUM [Concomitant]
     Active Substance: CEFMETAZOLE SODIUM
     Route: 065
     Dates: start: 20171226, end: 20171227
  2. AZUNOL GARGLE LIQUID [Concomitant]
     Indication: STOMATITIS
     Route: 065
     Dates: start: 20171118, end: 20171224
  3. MECOBALAMIN [Concomitant]
     Active Substance: METHYLCOBALAMIN
     Route: 065
     Dates: start: 20170701, end: 20171225
  4. NEUROTROPIN (JAPAN) [Concomitant]
     Indication: POST HERPETIC NEURALGIA
     Route: 065
     Dates: start: 20171228, end: 20180108
  5. CHOCOLA BB PLUS [Concomitant]
     Indication: STOMATITIS
     Route: 065
     Dates: start: 20171230, end: 20180112
  6. POLARAMINE [Concomitant]
     Active Substance: DEXCHLORPHENIRAMINE MALEATE
     Indication: HYPERSENSITIVITY
     Route: 065
     Dates: start: 20180123, end: 20180123
  7. FEXOFENADINE HYDROCHLORIDE. [Concomitant]
     Active Substance: FEXOFENADINE HYDROCHLORIDE
     Indication: RASH MACULO-PAPULAR
     Route: 065
     Dates: start: 20180212, end: 20180212
  8. MAGMITT [Concomitant]
     Active Substance: MAGNESIUM OXIDE
     Indication: CONSTIPATION
     Route: 065
     Dates: start: 20180109
  9. ANAPEINE [Concomitant]
     Active Substance: ROPIVACAINE HYDROCHLORIDE
     Route: 065
     Dates: start: 20171226, end: 20171226
  10. NEUROTROPIN (JAPAN) [Concomitant]
     Route: 065
     Dates: start: 20170701, end: 20171225
  11. HEPARINOID [Concomitant]
     Active Substance: CHONDROITIN SULFATE (BOVINE)
     Indication: DRY SKIN
     Route: 065
     Dates: start: 20180105
  12. DEXAMETHASONE SODIUM PHOSPHATE. [Concomitant]
     Active Substance: DEXAMETHASONE SODIUM PHOSPHATE
     Route: 042
     Dates: start: 20171206, end: 20171206
  13. DERMOVATE [Concomitant]
     Active Substance: CLOBETASOL
     Indication: RASH MACULO-PAPULAR
     Route: 061
     Dates: start: 20180208, end: 20180212
  14. SENNOSIDE [Concomitant]
     Active Substance: SENNOSIDES
     Route: 065
     Dates: start: 20180227, end: 20180227
  15. BEVACIZUMAB. [Suspect]
     Active Substance: BEVACIZUMAB
     Indication: OVARIAN CANCER
     Dosage: DATE OF MOST RECENT DOSE OF BEVACIZUMAB (820 MG) PRIOR TO AE ONSET: 09/NOV/2017
     Route: 042
     Dates: start: 20171012, end: 20180306
  16. CHOCOLA BB PLUS [Concomitant]
     Route: 065
     Dates: start: 20171110, end: 20171225
  17. GASTER [Concomitant]
     Active Substance: FAMOTIDINE
     Indication: HYPERSENSITIVITY
     Route: 065
     Dates: start: 20180123, end: 20180123
  18. METOCLOPRAMIDE. [Concomitant]
     Active Substance: METOCLOPRAMIDE
     Route: 065
     Dates: start: 20171210, end: 20171210
  19. REBAMIPIDE [Concomitant]
     Active Substance: REBAMIPIDE
     Indication: ABDOMINAL PAIN UPPER
     Route: 065
     Dates: start: 20180212
  20. MAGMITT [Concomitant]
     Active Substance: MAGNESIUM OXIDE
     Route: 065
     Dates: start: 20171129, end: 20171225
  21. POSTERISAN FORTE [Concomitant]
     Active Substance: LIDOCAINE
  22. ROPION [Concomitant]
     Active Substance: FLURBIPROFEN AXETIL
     Route: 065
     Dates: start: 20171226, end: 20171227
  23. OMEPRAZOLE. [Concomitant]
     Active Substance: OMEPRAZOLE
     Indication: ABDOMINAL PAIN UPPER
     Route: 065
     Dates: start: 20171227, end: 20171228
  24. PRIMPERAN [Concomitant]
     Active Substance: METOCLOPRAMIDE HYDROCHLORIDE
     Route: 065
     Dates: start: 20171227, end: 20171227
  25. HIRUDOID LOTION [Concomitant]
     Indication: DRY SKIN
     Route: 065
     Dates: start: 20171102, end: 20180104
  26. ALOXI [Concomitant]
     Active Substance: PALONOSETRON HYDROCHLORIDE
     Route: 065
     Dates: start: 20171206, end: 20171206
  27. MAGMITT [Concomitant]
     Active Substance: MAGNESIUM OXIDE
     Route: 065
     Dates: start: 20180102, end: 20180102
  28. XYLOCAINE [Concomitant]
     Active Substance: LIDOCAINE HYDROCHLORIDE
     Route: 065
     Dates: start: 20180228, end: 20180228
  29. BLINDED ATEZOLIZUMAB [Suspect]
     Active Substance: ATEZOLIZUMAB
     Indication: OVARIAN CANCER
     Dosage: DATE OF MOST RECENT DOSE OF ATEZOLIZUMAB/PLACEBO ADMINISTERED PRIOR TO AE ONSET: 23/JAN/2018
     Route: 042
     Dates: start: 20171012, end: 20180306
  30. CARBOPLATIN. [Suspect]
     Active Substance: CARBOPLATIN
     Indication: OVARIAN CANCER
     Dosage: DATE OF MOST RECENT DOSE OF CARBOPLATIN (547 MG) PRIOR TO AE ONSET: 23/JAN/2018?CARBOPLATIN AT A DOS
     Route: 042
     Dates: start: 20171012, end: 20180306
  31. PROPETO [Concomitant]
     Indication: DRY SKIN
     Route: 065
     Dates: start: 20171023, end: 20171223
  32. MAGCOROL P [Concomitant]
     Active Substance: MAGNESIUM CITRATE
     Route: 065
     Dates: start: 20171225, end: 20171225
  33. LOCOID [Concomitant]
     Active Substance: HYDROCORTISONE BUTYRATE
     Route: 061
     Dates: start: 20171227, end: 20171228
  34. MOHRUS TAPE [Concomitant]
     Active Substance: KETOPROFEN
     Indication: BACK PAIN
     Route: 065
     Dates: start: 20171121, end: 20171223
  35. PREGABALIN. [Concomitant]
     Active Substance: PREGABALIN
     Indication: POST HERPETIC NEURALGIA
     Route: 065
     Dates: start: 20171230, end: 20180108
  36. PREGABALIN. [Concomitant]
     Active Substance: PREGABALIN
     Route: 065
     Dates: start: 20170701, end: 20171225
  37. DAIKENCHUTO [Concomitant]
     Active Substance: HERBALS
     Indication: ABDOMINAL PAIN
     Route: 065
     Dates: start: 20180116
  38. DEXAMETHASONE SODIUM PHOSPHATE. [Concomitant]
     Active Substance: DEXAMETHASONE SODIUM PHOSPHATE
     Indication: NAUSEA
     Route: 042
     Dates: start: 20180123, end: 20180123
  39. GASTER [Concomitant]
     Active Substance: FAMOTIDINE
     Route: 065
     Dates: start: 20171206, end: 20171206
  40. METOCLOPRAMIDE. [Concomitant]
     Active Substance: METOCLOPRAMIDE
     Indication: NAUSEA
     Route: 065
     Dates: start: 20180124, end: 20180128
  41. LIDOCAINE. [Concomitant]
     Active Substance: LIDOCAINE
     Route: 042
     Dates: start: 20171226, end: 20171226
  42. BRIDION [Concomitant]
     Active Substance: SUGAMMADEX
     Route: 042
     Dates: start: 20171226, end: 20171226
  43. FENTANYL. [Concomitant]
     Active Substance: FENTANYL
     Indication: GENERAL ANAESTHESIA
     Route: 042
     Dates: start: 20171226, end: 20171227
  44. SOLYUGEN [Concomitant]
     Route: 065
     Dates: start: 20171226, end: 20171226
  45. POLARAMINE [Concomitant]
     Active Substance: DEXCHLORPHENIRAMINE MALEATE
  46. SALAZOSULFAPYRIDINE [Concomitant]
     Active Substance: SULFASALAZINE
     Route: 065
     Dates: start: 20180306, end: 20180502
  47. SALAZOSULFAPYRIDINE [Concomitant]
     Active Substance: SULFASALAZINE
     Dosage: 200 MG X 2
     Route: 065
     Dates: start: 20180503
  48. PACLITAXEL. [Suspect]
     Active Substance: PACLITAXEL
     Indication: OVARIAN CANCER
     Dosage: DATE OF MOST RECENT DOSE OF PACLITAXEL (200 MG) PRIOR TO AE ONSET: 23/JAN/2018
     Route: 042
     Dates: start: 20171012, end: 20180306
  49. LOXOPROFEN EMEC [Concomitant]
     Active Substance: LOXOPROFEN
     Indication: PROCEDURAL PAIN
     Route: 065
     Dates: start: 20171227, end: 20180108
  50. SENNOSIDE [Concomitant]
     Active Substance: SENNOSIDES
     Route: 065
     Dates: start: 20171224, end: 20171224
  51. DROLEPTAN [Concomitant]
     Active Substance: DROPERIDOL
     Route: 065
     Dates: start: 20171226, end: 20171227
  52. CALONAL [Concomitant]
     Active Substance: ACETAMINOPHEN
     Route: 065
     Dates: start: 20180102, end: 20180102
  53. MECOBALAMIN [Concomitant]
     Active Substance: METHYLCOBALAMIN
     Indication: POST HERPETIC NEURALGIA
     Route: 065
     Dates: start: 20171228, end: 20180108
  54. POLARAMINE [Concomitant]
     Active Substance: DEXCHLORPHENIRAMINE MALEATE
     Route: 065
     Dates: start: 20171206, end: 20171206
  55. ALOXI [Concomitant]
     Active Substance: PALONOSETRON HYDROCHLORIDE
     Indication: NAUSEA
     Route: 042
     Dates: start: 20180123, end: 20180123
  56. OTSUKA NORMAL SALINE [Concomitant]
     Indication: DEHYDRATION
     Route: 065
     Dates: start: 20180127, end: 20180127
  57. FILGRASTIM [Concomitant]
     Active Substance: FILGRASTIM
     Indication: NEUTROPHIL COUNT DECREASED
     Route: 065
     Dates: start: 20180226, end: 20180226
  58. REMIFENTANIL [Concomitant]
     Active Substance: REMIFENTANIL
     Route: 065
     Dates: start: 20171226, end: 20171226
  59. CLEXANE [Concomitant]
     Active Substance: ENOXAPARIN SODIUM
     Route: 065
     Dates: start: 20171227, end: 20171229
  60. POSTERISAN FORTE [Concomitant]
     Active Substance: LIDOCAINE
     Route: 061
     Dates: start: 20171230

REACTIONS (1)
  - Colitis [Not Recovered/Not Resolved]

NARRATIVE: CASE EVENT DATE: 20180105
